FAERS Safety Report 11333217 (Version 1)
Quarter: 2015Q3

REPORT INFORMATION
  Report Type: Spontaneous
  Country: US (occurrence: US)
  Receive Date: 20150803
  Receipt Date: 20150803
  Transmission Date: 20151125
  Serious: Yes (Other)
  Sender: FDA-Public Use
  Company Number: US-ELI_LILLY_AND_COMPANY-US200711003666

PATIENT
  Sex: Female

DRUGS (3)
  1. ZYPREXA ZYDIS [Suspect]
     Active Substance: OLANZAPINE
     Indication: SCHIZOPHRENIA
     Dosage: 10 MG, DAILY (1/D)
  2. RISPERDAL [Concomitant]
     Active Substance: RISPERIDONE
     Indication: SCHIZOPHRENIA
     Route: 048
  3. CONSTAN [Concomitant]
     Active Substance: ALPRAZOLAM

REACTIONS (3)
  - Thirst [Recovering/Resolving]
  - Hyponatraemia [Recovering/Resolving]
  - Seizure [Recovered/Resolved]
